FAERS Safety Report 8407251-X (Version None)
Quarter: 2012Q2

REPORT INFORMATION
  Report Type: 
  Country: None (occurrence: None)
  Receive Date: 20120604
  Receipt Date: 20120524
  Transmission Date: 20120825
  Serious: Yes (Hospitalization)
  Sender: FDA-Public Use
  Company Number: US-ASTRAZENECA-2011SE08929

PATIENT
  Age: 52 Year
  Sex: Female

DRUGS (6)
  1. VITAMIN B COMPLEX CAP [Concomitant]
  2. CRESTOR [Suspect]
     Route: 048
  3. CLONAZEPAM [Concomitant]
  4. ASPIRIN [Concomitant]
  5. CALCIUM [Concomitant]
  6. HYDROCODONE [Concomitant]

REACTIONS (8)
  - MEMORY IMPAIRMENT [None]
  - ASTHENIA [None]
  - ALANINE AMINOTRANSFERASE INCREASED [None]
  - PAIN IN EXTREMITY [None]
  - MYALGIA [None]
  - LEARNING DISORDER [None]
  - ASPARTATE AMINOTRANSFERASE INCREASED [None]
  - ARTERIAL OCCLUSIVE DISEASE [None]
